FAERS Safety Report 7179691-0 (Version None)
Quarter: 2010Q4

REPORT INFORMATION
  Report Type: 
  Country: None (occurrence: None)
  Receive Date: 20101221
  Receipt Date: 20101216
  Transmission Date: 20110411
  Serious: Yes (Other)
  Sender: FDA-Public Use
  Company Number: US-AMGEN-USASP2010009815

PATIENT

DRUGS (13)
  1. SENSIPAR [Suspect]
     Indication: HYPERPARATHYROIDISM SECONDARY
     Dates: start: 20101129
  2. SENSIPAR [Suspect]
     Dosage: UNK
     Dates: end: 20101124
  3. EPOGEN [Concomitant]
     Indication: RENAL FAILURE CHRONIC
  4. COREG [Concomitant]
  5. NEURONTIN [Concomitant]
  6. SODIUM BICARBONATE [Concomitant]
  7. CARDURA [Concomitant]
  8. ULTRAM [Concomitant]
     Dosage: UNK
  9. PREVACID [Concomitant]
  10. PLAQUENIL [Concomitant]
  11. ALTERNAGEL                         /00057401/ [Concomitant]
     Dosage: UNK
  12. VENOFER [Concomitant]
  13. HECTOROL [Concomitant]

REACTIONS (2)
  - LIMB DISCOMFORT [None]
  - PARAESTHESIA [None]
